FAERS Safety Report 8829966 (Version 1)
Quarter: 2012Q4

REPORT INFORMATION
  Report Type: Spontaneous
  Country: US (occurrence: None)
  Receive Date: 20121004
  Receipt Date: 20121004
  Transmission Date: 20130627
  Serious: Yes (Hospitalization)
  Sender: FDA-Public Use
  Company Number: TPA2012A06924

PATIENT
  Age: 68 Year
  Weight: 78.93 kg

DRUGS (4)
  1. PIOGLITAZONE HYDROCHLORIDE [Suspect]
     Indication: CEREBROVASCULAR ACCIDENT PROPHYLAXIS
     Dosage: 15 mg, 1 in 1 d, per oral
     Route: 048
     Dates: start: 20110923, end: 20111101
  2. PIOGLITAZONE HYDROCHLORIDE [Suspect]
     Indication: CEREBROVASCULAR ACCIDENT PROPHYLAXIS
     Dosage: 30 mg, 1 in 1 d, per oral
     Route: 048
     Dates: start: 20111102, end: 20111215
  3. PIOGLITAZONE HYDROCHLORIDE [Suspect]
     Indication: CEREBROVASCULAR ACCIDENT PROPHYLAXIS
     Dosage: 45 mg, 1 in 1 d, per oral
     Dates: start: 20111215, end: 20120802
  4. PLAVIX (CLOPIDOGREL BISULFATE) [Concomitant]

REACTIONS (5)
  - Cardiac failure congestive [None]
  - Cerebrovascular accident [None]
  - Pulmonary oedema [None]
  - Septic shock [None]
  - Escherichia infection [None]
